FAERS Safety Report 8607473-9 (Version None)
Quarter: 2012Q3

REPORT INFORMATION
  Report Type: 
  Country: None (occurrence: None)
  Receive Date: 20120821
  Receipt Date: 20120809
  Transmission Date: 20120928
  Serious: Yes (Death, Life-Threatening, Hospitalization, Disabling)
  Sender: FDA-Public Use
  Company Number: BR-JNJFOC-20120613332

PATIENT
  Sex: Male
  Weight: 64.4 kg

DRUGS (4)
  1. PREDNISONE [Suspect]
     Indication: PROSTATE CANCER METASTATIC
     Route: 048
     Dates: start: 20111110, end: 20120623
  2. ABIRATERONE ACETATE [Suspect]
     Indication: PROSTATE CANCER METASTATIC
     Route: 048
     Dates: start: 20111110, end: 20120623
  3. ABIRATERONE ACETATE [Suspect]
     Route: 048
  4. GOSERELIN [Concomitant]
     Indication: HORMONE THERAPY
     Route: 065
     Dates: start: 20100910

REACTIONS (1)
  - DIARRHOEA [None]
